FAERS Safety Report 21856073 (Version 1)
Quarter: 2023Q1

REPORT INFORMATION
  Report Type: Spontaneous
  Country: CN (occurrence: CN)
  Receive Date: 20230112
  Receipt Date: 20230112
  Transmission Date: 20230418
  Serious: Yes (Hospitalization)
  Sender: FDA-Public Use
  Company Number: CN-ALLERGAN-2300522US

PATIENT
  Sex: Male
  Weight: 50 kg

DRUGS (6)
  1. PRED FORTE [Suspect]
     Active Substance: PREDNISOLONE ACETATE
     Indication: Eye inflammation
     Dosage: 1 GTT, QID
     Route: 047
     Dates: start: 20221202
  2. PRED FORTE [Suspect]
     Active Substance: PREDNISOLONE ACETATE
     Dosage: 10 DROPS
     Route: 047
     Dates: start: 20221126, end: 20221201
  3. PRED FORTE [Suspect]
     Active Substance: PREDNISOLONE ACETATE
     Dosage: UNK
     Route: 047
     Dates: start: 20221125, end: 20221125
  4. DEXAMETHASONE SODIUM PHOSPHATE [Concomitant]
     Active Substance: DEXAMETHASONE SODIUM PHOSPHATE
     Indication: Eye inflammation
     Dosage: 15 MG, QD
     Route: 042
     Dates: start: 20221126, end: 20221201
  5. SODIUM BICARBONATE [Concomitant]
     Active Substance: SODIUM BICARBONATE
     Indication: Urine alkalinisation therapy
     Dosage: 1.5 GRAM
     Route: 048
     Dates: start: 20221202, end: 20221202
  6. ESTAZOLAM [Concomitant]
     Active Substance: ESTAZOLAM
     Indication: Insomnia
     Route: 048
     Dates: start: 20221201, end: 20221201

REACTIONS (7)
  - Eye inflammation [Recovering/Resolving]
  - Condition aggravated [Recovering/Resolving]
  - Endophthalmitis [Recovering/Resolving]
  - Migraine [Recovering/Resolving]
  - Ocular discomfort [Recovering/Resolving]
  - Glaucoma [Recovering/Resolving]
  - Eye pain [Recovering/Resolving]

NARRATIVE: CASE EVENT DATE: 20221126
